FAERS Safety Report 5643495-8 (Version None)
Quarter: 2008Q1

REPORT INFORMATION
  Report Type: 
  Country: None (occurrence: None)
  Receive Date: 20080131
  Receipt Date: 20071108
  Transmission Date: 20080703
  Serious: Yes (Hospitalization)
  Sender: FDA-Public Use
  Company Number: 163-21880-07100084

PATIENT
  Age: 65 Year
  Sex: Female
  Weight: 48.0813 kg

DRUGS (11)
  1. REVLIMID [Suspect]
     Indication: MULTIPLE MYELOMA
     Dosage: QD, ORAL
     Route: 048
     Dates: start: 20070818
  2. ESTROGEN (ESTROGEN NOS) [Concomitant]
  3. DEXAMETHASONE TAB [Concomitant]
  4. PROTONIX (PANTOPRASONE SODIUM) [Concomitant]
  5. OXYCODONE HCL [Concomitant]
  6. DURAGESIC-100 [Concomitant]
  7. ZOFRAN [Concomitant]
  8. CARAFATE [Concomitant]
  9. DILAUDID [Concomitant]
  10. ASPIRIN [Concomitant]
  11. IRON (IRON) [Concomitant]

REACTIONS (10)
  - DECREASED APPETITE [None]
  - DEHYDRATION [None]
  - DIARRHOEA [None]
  - DIZZINESS [None]
  - INFECTION [None]
  - NAUSEA [None]
  - PYREXIA [None]
  - RETCHING [None]
  - WEIGHT DECREASED [None]
  - WHITE BLOOD CELL COUNT DECREASED [None]
